FAERS Safety Report 18952722 (Version 1)
Quarter: 2021Q1

REPORT INFORMATION
  Report Type: Spontaneous
  Country: US (occurrence: US)
  Receive Date: 20210226
  Receipt Date: 20210226
  Transmission Date: 20210420
  Serious: No
  Sender: FDA-Public Use
  Company Number: None

PATIENT
  Age: 46 Year
  Sex: Male
  Weight: 94.8 kg

DRUGS (9)
  1. VALACYCLOVIR 1GM [Concomitant]
     Active Substance: VALACYCLOVIR HYDROCHLORIDE
  2. TAMSULOSIN 0.4MG [Concomitant]
     Active Substance: TAMSULOSIN
  3. ZOFRAN [Concomitant]
     Active Substance: ONDANSETRON HYDROCHLORIDE
  4. FERROUS SULFATE 325MG [Concomitant]
     Active Substance: FERROUS SULFATE
  5. COLACE 50MG [Concomitant]
  6. BRAFTOVI [Suspect]
     Active Substance: ENCORAFENIB
     Indication: COLON CANCER
     Route: 048
     Dates: start: 20200917, end: 20210226
  7. LACTULOSE 10GM/15ML [Concomitant]
  8. LANSOPRAZOLE 30MG [Concomitant]
     Active Substance: LANSOPRAZOLE
  9. PERCOCET [Concomitant]
     Active Substance: ACETAMINOPHEN\OXYCODONE HYDROCHLORIDE

REACTIONS (1)
  - Disease progression [None]

NARRATIVE: CASE EVENT DATE: 20210226
